FAERS Safety Report 13706968 (Version 1)
Quarter: 2017Q2

REPORT INFORMATION
  Report Type: Spontaneous
  Country: US (occurrence: US)
  Receive Date: 20170630
  Receipt Date: 20170630
  Transmission Date: 20170830
  Serious: No
  Sender: FDA-Public Use
  Company Number: US-PFIZER INC-2016389019

PATIENT
  Age: 54 Year
  Sex: Female
  Weight: 77.11 kg

DRUGS (10)
  1. LYRICA [Suspect]
     Active Substance: PREGABALIN
     Indication: FIBROMYALGIA
     Dosage: 50 MG, 1X/DAY (BEDTIME)
     Route: 048
  2. CYMBALTA [Concomitant]
     Active Substance: DULOXETINE HYDROCHLORIDE
     Dosage: 60 MG, 1X/DAY (BEDTIME)
     Route: 048
     Dates: start: 20140715
  3. FLUTICASONE PROPIONATE. [Concomitant]
     Active Substance: FLUTICASONE PROPIONATE
     Indication: HYPERSENSITIVITY
     Dosage: UNK UNK, AS NEEDED (2 SPRAYS IN EACH NOSTRIL ONCE DAILY X 1 MONTH)
     Route: 045
     Dates: start: 20110907
  4. CLOTRIMAZOLE AND BETAMETHASONE [Concomitant]
     Active Substance: BETAMETHASONE\CLOTRIMAZOLE
     Dosage: UNK UNK, 2X/DAY(BETAMETHASONE 1%, CLOTRIMAZOLE 0.05%)
     Route: 061
     Dates: start: 20150223
  5. LYRICA [Suspect]
     Active Substance: PREGABALIN
     Dosage: 60 MG, 2X/DAY
     Route: 048
     Dates: start: 2017
  6. BIOTIN [Concomitant]
     Active Substance: BIOTIN
     Dosage: 5 MG, DAILY
     Route: 048
     Dates: start: 20140715
  7. SYSTANE NIGHTTIME [Concomitant]
     Active Substance: MINERAL OIL\PETROLATUM
     Dosage: UNK (APPLY 1/2 INCH RIBBON INTO AFFECTED EYES(S) AT BEDTIME)
     Route: 047
     Dates: start: 20120515
  8. LYRICA [Suspect]
     Active Substance: PREGABALIN
     Dosage: 50 MG, 2X/DAY
     Route: 048
  9. TURMERIC [Concomitant]
     Active Substance: HERBALS\TURMERIC
     Dosage: UNK
  10. VITAMIN D3 [Concomitant]
     Active Substance: CHOLECALCIFEROL
     Dosage: 2000 IU, DAILY
     Route: 048

REACTIONS (9)
  - Back pain [Unknown]
  - Malaise [Unknown]
  - Asthenia [Not Recovered/Not Resolved]
  - Intentional product use issue [Unknown]
  - Withdrawal syndrome [Unknown]
  - Migraine [Not Recovered/Not Resolved]
  - Arthralgia [Unknown]
  - Blood pressure increased [Recovered/Resolved]
  - Nausea [Recovering/Resolving]

NARRATIVE: CASE EVENT DATE: 20170617
